FAERS Safety Report 11500112 (Version 1)
Quarter: 2015Q3

REPORT INFORMATION
  Report Type: Spontaneous
  Country: US (occurrence: US)
  Receive Date: 20150914
  Receipt Date: 20150914
  Transmission Date: 20151125
  Serious: No
  Sender: FDA-Public Use
  Company Number: US-UPSHER-SMITH LABORATORIES, INC.-15001588

PATIENT
  Sex: Male

DRUGS (1)
  1. OXYBUTYNIN CHLORIDE. [Suspect]
     Active Substance: OXYBUTYNIN CHLORIDE
     Indication: HYPERTONIC BLADDER
     Dosage: 5 MG, DAILY AT BEDTIME
     Route: 048
     Dates: start: 2015, end: 2015

REACTIONS (1)
  - Coating in mouth [Recovered/Resolved]

NARRATIVE: CASE EVENT DATE: 2015
